FAERS Safety Report 17192464 (Version 18)
Quarter: 2022Q2

REPORT INFORMATION
  Report Type: Spontaneous
  Country: US (occurrence: US)
  Receive Date: 20191223
  Receipt Date: 20220613
  Transmission Date: 20220720
  Serious: Yes (Death, Life-Threatening, Other)
  Sender: FDA-Public Use
  Company Number: US-AMGEN-USASP2019210482

PATIENT

DRUGS (7)
  1. CARFILZOMIB [Suspect]
     Active Substance: CARFILZOMIB
     Indication: Plasma cell myeloma
     Dosage: 20 MILLIGRAM/SQ. METER ON DAYS 1, 2
     Route: 065
  2. CARFILZOMIB [Suspect]
     Active Substance: CARFILZOMIB
     Dosage: 56 MILLIGRAM/SQ. METER ON DAY 8, 9, 15 AND 16
     Route: 065
  3. ISATUXIMAB [Suspect]
     Active Substance: ISATUXIMAB
     Indication: Plasma cell myeloma
     Dosage: 10 MILLIGRAM/KILOGRAM; DAYS 1, 8, 15 AND 22 THEN DAYS 1 AND 15 IN SUBSEQUENT CYCLES
     Route: 042
  4. DEXAMETHASONE [Suspect]
     Active Substance: DEXAMETHASONE
     Indication: Plasma cell myeloma
     Dosage: 20 MILLIGRAM; ON DAYS 1, 2, 8, 9, 15, 16, 22, AND 23 OF EVERY CYCLE
     Route: 065
  5. DIPHENHYDRAMINE [Concomitant]
     Active Substance: DIPHENHYDRAMINE
     Dosage: 25-50 MG
     Route: 042
  6. RANITIDINE [Concomitant]
     Active Substance: RANITIDINE
     Dosage: 50 MILLIGRAM
     Route: 042
  7. ACETAMINOPHEN [Concomitant]
     Active Substance: ACETAMINOPHEN
     Dosage: 650-1000 MG

REACTIONS (41)
  - Adverse drug reaction [Unknown]
  - Death [Fatal]
  - Adverse event [Fatal]
  - End stage renal disease [Unknown]
  - Respiratory tract infection [Unknown]
  - Thrombocytopenia [Unknown]
  - Neutropenia [Unknown]
  - Pneumonia [Unknown]
  - Diarrhoea [Unknown]
  - Fatigue [Unknown]
  - Dyspnoea [Unknown]
  - Insomnia [Unknown]
  - Bronchitis [Unknown]
  - Back pain [Unknown]
  - Embolism [Unknown]
  - Skin cancer [Unknown]
  - Neoplasm malignant [Unknown]
  - Fall [Unknown]
  - Anaemia [Unknown]
  - Headache [Unknown]
  - Asthenia [Unknown]
  - Oedema peripheral [Unknown]
  - Nausea [Unknown]
  - Vomiting [Unknown]
  - Plasma cell myeloma [Unknown]
  - Myocardial ischaemia [Unknown]
  - Hypertension [Unknown]
  - Cardiac failure [Unknown]
  - Infusion related reaction [Unknown]
  - Embolism venous [Unknown]
  - Embolism arterial [Unknown]
  - Acute kidney injury [Unknown]
  - Toxicity to various agents [Unknown]
  - Drug ineffective [Unknown]
  - Therapy partial responder [Unknown]
  - Off label use [Unknown]
  - Nasopharyngitis [Unknown]
  - Upper respiratory tract infection [Unknown]
  - Cough [Unknown]
  - Infestation [Unknown]
  - Pyrexia [Unknown]
